FAERS Safety Report 7042712-X (Version None)
Quarter: 2010Q4

REPORT INFORMATION
  Report Type: 
  Country: None (occurrence: None)
  Receive Date: 20101013
  Receipt Date: 20100405
  Transmission Date: 20110411
  Serious: No
  Sender: FDA-Public Use
  Company Number: US-ASTRAZENECA-2010SE14842

PATIENT
  Age: 62 Year
  Sex: Female
  Weight: 65.8 kg

DRUGS (5)
  1. SYMBICORT [Suspect]
     Indication: WHEEZING
     Dosage: 160/4.5  2 PUFFS
     Route: 055
     Dates: start: 20100301
  2. ANTACIDS OTC [Concomitant]
     Indication: GASTROOESOPHAGEAL REFLUX DISEASE
  3. DOXEPIN HCL [Concomitant]
     Indication: SLEEP DISORDER
  4. DOXEPIN HCL [Concomitant]
     Indication: ANXIETY
  5. LORTAB [Concomitant]

REACTIONS (8)
  - ANXIETY [None]
  - CHEST DISCOMFORT [None]
  - DYSPEPSIA [None]
  - DYSPNOEA [None]
  - RESPIRATORY TRACT INFECTION FUNGAL [None]
  - SPUTUM DISCOLOURED [None]
  - THROAT LESION [None]
  - WHEEZING [None]
